FAERS Safety Report 9683899 (Version 1)
Quarter: 2013Q4

REPORT INFORMATION
  Report Type: Spontaneous
  Country: US (occurrence: US)
  Receive Date: 20131112
  Receipt Date: 20131112
  Transmission Date: 20140711
  Serious: No
  Sender: FDA-Public Use
  Company Number: US-MALLINCKRODT-T201304289

PATIENT
  Age: 63 Year
  Sex: Female
  Weight: 89.34 kg

DRUGS (7)
  1. FENTANYL TRANSDERMAL SYSTEM [Suspect]
     Indication: PAIN
     Dosage: 25 UG/HR, ONE PATCH EVERY 72 HOURS
     Route: 062
     Dates: start: 20130716, end: 20130719
  2. DURAGESIC                          /00174601/ [Concomitant]
     Indication: PAIN
     Dosage: 25 UG/HR, Q72H
     Route: 062
     Dates: start: 20130713, end: 20130716
  3. DILANTIN                           /00017401/ [Concomitant]
     Indication: EPILEPSY
     Dosage: 100 MG, 2 CAPS IN THE AM AND 2 IN THE PM
     Route: 048
     Dates: start: 19730701
  4. TYLENOL                            /00020001/ [Concomitant]
     Indication: PAIN
     Dosage: 1000 MG, QD
     Route: 048
     Dates: start: 201307, end: 201308
  5. IBUPROFEN [Concomitant]
     Indication: PAIN
     Dosage: 800 MG, QD
     Route: 048
     Dates: start: 201307, end: 201308
  6. PRILOSEC                           /00661201/ [Concomitant]
     Dosage: UNK
     Dates: end: 201308
  7. STOOL SOFTENER [Concomitant]
     Dosage: UNK
     Dates: end: 201308

REACTIONS (2)
  - Nightmare [Recovered/Resolved]
  - Depression [Recovered/Resolved]
